FAERS Safety Report 15256025 (Version 2)
Quarter: 2018Q3

REPORT INFORMATION
  Report Type: Spontaneous
  Country: US (occurrence: US)
  Receive Date: 20180808
  Receipt Date: 20180824
  Transmission Date: 20181010
  Serious: Yes (Hospitalization)
  Sender: FDA-Public Use
  Company Number: US-TEVA-2018-US-938952

PATIENT
  Age: 36 Year
  Sex: Female

DRUGS (2)
  1. IPILIMUMAB [Suspect]
     Active Substance: IPILIMUMAB
     Indication: MALIGNANT MELANOMA
     Route: 065
     Dates: start: 2017
  2. PREDNISONE. [Suspect]
     Active Substance: PREDNISONE
     Indication: LYMPHOCYTIC HYPOPHYSITIS
     Dosage: 100 MILLIGRAM DAILY;
     Route: 065

REACTIONS (1)
  - Lymphocytic hypophysitis [Unknown]

NARRATIVE: CASE EVENT DATE: 2017
